FAERS Safety Report 25652230 (Version 2)
Quarter: 2025Q3

REPORT INFORMATION
  Report Type: Spontaneous
  Country: JP (occurrence: JP)
  Receive Date: 20250807
  Receipt Date: 20250917
  Transmission Date: 20251021
  Serious: Yes (Other)
  Sender: CELLTRION
  Company Number: JP-CELLTRION INC.-2025JP026068

PATIENT

DRUGS (9)
  1. TRASTUZUMAB [Suspect]
     Active Substance: TRASTUZUMAB
     Indication: HER2 positive gastric cancer
     Route: 065
  2. TRASTUZUMAB [Suspect]
     Active Substance: TRASTUZUMAB
     Route: 065
  3. OXALIPLATIN [Suspect]
     Active Substance: OXALIPLATIN
     Indication: HER2 positive gastric cancer
     Route: 042
  4. OXALIPLATIN [Suspect]
     Active Substance: OXALIPLATIN
     Route: 042
  5. TS-1 [Suspect]
     Active Substance: GIMERACIL\OTERACIL POTASSIUM\TEGAFUR
     Indication: HER2 positive gastric cancer
     Route: 048
  6. TS-1 [Suspect]
     Active Substance: GIMERACIL\OTERACIL POTASSIUM\TEGAFUR
     Route: 048
  7. APREPITANT [Concomitant]
     Active Substance: APREPITANT
     Indication: Premedication
  8. APREPITANT [Concomitant]
     Active Substance: APREPITANT
  9. APREPITANT [Concomitant]
     Active Substance: APREPITANT

REACTIONS (6)
  - Ventricular tachyarrhythmia [Unknown]
  - Cardiotoxicity [Unknown]
  - Cardiac failure [Unknown]
  - Cardiomyopathy [Unknown]
  - Therapy partial responder [Unknown]
  - Product use issue [Unknown]
